FAERS Safety Report 20615125 (Version 1)
Quarter: 2022Q1

REPORT INFORMATION
  Report Type: Spontaneous
  Country: JP (occurrence: JP)
  Receive Date: 20220321
  Receipt Date: 20220321
  Transmission Date: 20220423
  Serious: Yes (Life-Threatening)
  Sender: FDA-Public Use
  Company Number: JP-BAUSCH-BL-2022-006882

PATIENT
  Age: 83 Year
  Sex: Male

DRUGS (6)
  1. DEXAMETHASONE [Suspect]
     Active Substance: DEXAMETHASONE
     Indication: Primary amyloidosis
     Route: 065
  2. BORTEZOMIB [Suspect]
     Active Substance: BORTEZOMIB
     Indication: Primary amyloidosis
     Route: 065
  3. URSODIOL [Suspect]
     Active Substance: URSODIOL
     Indication: Primary amyloidosis
     Route: 065
  4. GLYCYRRHIZIN [Suspect]
     Active Substance: GLYCYRRHIZIN
     Indication: Primary amyloidosis
     Route: 065
  5. GLYCINE [Suspect]
     Active Substance: GLYCINE
     Indication: Primary amyloidosis
     Route: 065
  6. CYSTEINE [Suspect]
     Active Substance: CYSTEINE
     Indication: Primary amyloidosis
     Route: 065

REACTIONS (1)
  - Therapy non-responder [Unknown]
